FAERS Safety Report 23223952 (Version 1)
Quarter: 2023Q4

REPORT INFORMATION
  Report Type: Spontaneous
  Country: GB (occurrence: GB)
  Receive Date: 20231124
  Receipt Date: 20231124
  Transmission Date: 20240110
  Serious: Yes (Hospitalization, Other)
  Sender: FDA-Public Use
  Company Number: GB-PHARMVIT-4556-3352-ER23-RN815

PATIENT
  Age: 33 Year
  Sex: Female

DRUGS (1)
  1. PREDNISOLONE [Suspect]
     Active Substance: PREDNISOLONE
     Indication: Product used for unknown indication
     Dosage: UNIT DOSE: 40MG, WEANING THE DOSE BY 5 MG EVERY 2 WEEKS
     Route: 065

REACTIONS (1)
  - Hyperglycaemia [Recovering/Resolving]
